FAERS Safety Report 5068529-3 (Version None)
Quarter: 2006Q3

REPORT INFORMATION
  Report Type: 
  Country: None (occurrence: None)
  Receive Date: 20060802
  Receipt Date: 20051109
  Transmission Date: 20061208
  Serious: Yes (Hospitalization)
  Sender: FDA-Public Use
  Company Number: US-BRISTOL-MYERS SQUIBB COMPANY-13175104

PATIENT
  Age: 59 Year
  Sex: Male
  Weight: 82 kg

DRUGS (5)
  1. COUMADIN [Suspect]
     Indication: AORTIC VALVE REPLACEMENT
     Dosage: DISCONTINUED IN JAN-2005, REINSTITUTED IN MAR OR APR-2005
     Dates: start: 20050120
  2. PREVACID [Concomitant]
     Dates: start: 20050101
  3. LIPITOR [Concomitant]
  4. HYDROCHLOROTHIAZIDE [Concomitant]
     Dates: start: 20050401
  5. TEMAZEPAM [Concomitant]
     Dates: start: 20050101

REACTIONS (2)
  - GASTROINTESTINAL HAEMORRHAGE [None]
  - INTERNATIONAL NORMALISED RATIO FLUCTUATION [None]
